FAERS Safety Report 16163648 (Version 2)
Quarter: 2019Q2

REPORT INFORMATION
  Report Type: Spontaneous
  Country: US (occurrence: US)
  Receive Date: 20190405
  Receipt Date: 20190508
  Transmission Date: 20190711
  Serious: No
  Sender: FDA-Public Use
  Company Number: US-PFIZER INC-2019140922

PATIENT
  Age: 80 Year
  Sex: Female

DRUGS (2)
  1. NORVASC [Suspect]
     Active Substance: AMLODIPINE BESYLATE
     Indication: HYPERTENSION
     Dosage: 2.5 MG DAILY (1 IN THE MORNING, AND A SECOND 2.5 MG IF HER BLOOD PRESSURE SHOULD GO UP)
  2. NORVASC [Suspect]
     Active Substance: AMLODIPINE BESYLATE
     Indication: BLOOD PRESSURE MANAGEMENT
     Dosage: 2 DF, DAILY

REACTIONS (2)
  - Product use issue [Unknown]
  - Off label use [Unknown]
